FAERS Safety Report 8192220-8 (Version None)
Quarter: 2012Q1

REPORT INFORMATION
  Report Type: 
  Country: None (occurrence: None)
  Receive Date: 20120307
  Receipt Date: 20120224
  Transmission Date: 20120608
  Serious: Yes (Death, Other)
  Sender: FDA-Public Use
  Company Number: JP-ROCHE-1044213

PATIENT
  Sex: Male

DRUGS (23)
  1. TRIMETHOPRIM + SULFAMETHOXAZOLE [Suspect]
     Indication: PROPHYLAXIS
     Route: 048
     Dates: start: 20040825, end: 20040829
  2. SOLU-MEDROL [Concomitant]
     Indication: PROPHYLAXIS AGAINST TRANSPLANT REJECTION
     Dosage: 40-1000MG
     Route: 042
     Dates: start: 20040824, end: 20040829
  3. SIMULECT [Concomitant]
     Dosage: DOSAGE IS UNCERTAIN.
     Route: 042
     Dates: start: 20040828, end: 20040828
  4. FREEZE-DRIED HUMAN COAGULATION FACTOR IX [Concomitant]
     Indication: PROPHYLAXIS
     Route: 042
     Dates: start: 20040825, end: 20040826
  5. GANCICLOVIR SODIUM [Suspect]
     Indication: PROPHYLAXIS
     Route: 042
     Dates: start: 20040825, end: 20040829
  6. LAMIVUDINE [Concomitant]
     Route: 048
     Dates: start: 20050601, end: 20070101
  7. PROGRAF [Concomitant]
     Indication: PROPHYLAXIS AGAINST TRANSPLANT REJECTION
     Dosage: 0.3-9MG/DAY
     Route: 048
     Dates: start: 20040825, end: 20070101
  8. OMEPRAZOLE [Concomitant]
     Route: 042
     Dates: start: 20040903, end: 20040911
  9. MYCOPHENOLATE MOFETIL (CELLCEPT) [Suspect]
     Route: 048
     Dates: start: 20040914, end: 20041025
  10. SIMULECT [Concomitant]
     Indication: PROPHYLAXIS AGAINST TRANSPLANT REJECTION
     Dosage: DOSAGE IS UNCERTAIN.
     Route: 042
     Dates: start: 20040824, end: 20040824
  11. PREDNISOLONE [Concomitant]
     Indication: PROPHYLAXIS AGAINST TRANSPLANT REJECTION
     Dosage: 2.5-20MG
     Route: 048
     Dates: start: 20040830, end: 20041227
  12. LAMIVUDINE [Concomitant]
     Indication: PROPHYLAXIS
     Route: 048
     Dates: start: 20040825, end: 20040825
  13. MYCOPHENOLATE MOFETIL (CELLCEPT) [Suspect]
     Indication: PROPHYLAXIS AGAINST TRANSPLANT REJECTION
     Route: 048
     Dates: start: 20040825, end: 20040829
  14. MYCOPHENOLATE MOFETIL (CELLCEPT) [Suspect]
     Route: 048
     Dates: start: 20040913, end: 20040913
  15. FUNGUARD [Concomitant]
     Indication: PROPHYLAXIS
     Route: 042
     Dates: start: 20040825, end: 20040829
  16. OMEPRAZOLE [Concomitant]
     Indication: PROPHYLAXIS
     Route: 042
     Dates: start: 20040825, end: 20040829
  17. LANSOPRAZOLE [Concomitant]
     Indication: PROPHYLAXIS
     Route: 048
     Dates: start: 20040830, end: 20050902
  18. FLUMARIN [Concomitant]
     Indication: PROPHYLAXIS
     Route: 042
     Dates: start: 20040821, end: 20040827
  19. CLINDAMYCIN [Concomitant]
     Indication: PROPHYLAXIS
     Route: 042
     Dates: start: 20040825, end: 20040829
  20. LASIX [Concomitant]
     Indication: ASCITES
     Dosage: 20-40MG
     Route: 048
     Dates: start: 20040908, end: 20050818
  21. MYCOPHENOLATE MOFETIL (CELLCEPT) [Suspect]
     Route: 048
     Dates: start: 20050211, end: 20070101
  22. URSO 250 [Concomitant]
     Indication: PROPHYLAXIS
     Route: 048
     Dates: start: 20040825
  23. RABEPRAZOLE SODIUM [Concomitant]
     Indication: PROPHYLAXIS
     Route: 048
     Dates: start: 20040912

REACTIONS (2)
  - WHITE BLOOD CELL COUNT DECREASED [None]
  - HEPATIC NEOPLASM MALIGNANT RECURRENT [None]
